FAERS Safety Report 6787703-9 (Version None)
Quarter: 2010Q2

REPORT INFORMATION
  Report Type: 
  Country: None (occurrence: None)
  Receive Date: 20100623
  Receipt Date: 20070830
  Transmission Date: 20101027
  Serious: Yes (Hospitalization, Other)
  Sender: FDA-Public Use
  Company Number: US-PFIZER INC-2007052971

PATIENT
  Age: 48 Year
  Sex: Female

DRUGS (5)
  1. GEODON [Suspect]
     Route: 030
  2. SERTRALINE HCL [Concomitant]
     Route: 048
  3. PHENYTOIN [Concomitant]
     Route: 048
  4. VISTARIL [Concomitant]
     Route: 048
  5. AMOXICILLIN [Concomitant]
     Route: 048

REACTIONS (2)
  - ANXIETY [None]
  - SPEECH DISORDER [None]
